FAERS Safety Report 19494172 (Version 1)
Quarter: 2021Q3

REPORT INFORMATION
  Report Type: Spontaneous
  Country: CA (occurrence: CA)
  Receive Date: 20210706
  Receipt Date: 20210706
  Transmission Date: 20211014
  Serious: Yes (Hospitalization, Other)
  Sender: FDA-Public Use
  Company Number: CA-ABBVIE-21K-028-3974142-00

PATIENT
  Age: 45 Year
  Sex: Female

DRUGS (12)
  1. INFLECTRA [Suspect]
     Active Substance: INFLIXIMAB-DYYB
     Indication: COLITIS ULCERATIVE
     Dosage: 0,2,6, AND THEN EVERY 8 WEEKS
     Route: 042
     Dates: start: 20201120, end: 20201231
  2. PREDNISONE. [Concomitant]
     Active Substance: PREDNISONE
     Indication: PRODUCT USED FOR UNKNOWN INDICATION
     Dates: end: 202105
  3. HUMIRA [Suspect]
     Active Substance: ADALIMUMAB
     Indication: COLITIS ULCERATIVE
     Route: 058
  4. INFLECTRA [Suspect]
     Active Substance: INFLIXIMAB-DYYB
     Route: 042
     Dates: start: 20210322, end: 20210322
  5. INFLECTRA [Suspect]
     Active Substance: INFLIXIMAB-DYYB
     Dosage: 0,2, 6,8 WEEKS
     Route: 042
     Dates: start: 20210419, end: 2021
  6. INFLECTRA [Suspect]
     Active Substance: INFLIXIMAB-DYYB
     Dosage: 0,2,6, AND THEN EVERY 8 WEEKS
     Route: 042
     Dates: start: 20210322, end: 20210322
  7. INFLECTRA [Suspect]
     Active Substance: INFLIXIMAB-DYYB
     Dosage: 0,2,6, AND THEN EVERY 8 WEEKS
     Route: 042
     Dates: start: 20210521, end: 20210521
  8. INFLECTRA [Suspect]
     Active Substance: INFLIXIMAB-DYYB
     Dosage: 0,2,6, AND THEN EVERY 8 WEEKS
     Route: 042
     Dates: start: 20201231, end: 20201231
  9. INFLECTRA [Suspect]
     Active Substance: INFLIXIMAB-DYYB
     Dosage: 0,2,6, AND THEN EVERY 8 WEEKS
     Route: 042
     Dates: start: 20210221, end: 20210221
  10. INFLECTRA [Suspect]
     Active Substance: INFLIXIMAB-DYYB
     Dosage: 0,2,6, AND THEN EVERY 8 WEEKS
     Route: 042
     Dates: start: 20210322, end: 20210322
  11. ENTYVIO [Suspect]
     Active Substance: VEDOLIZUMAB
     Indication: COLITIS ULCERATIVE
     Route: 065
  12. ASACOL [Suspect]
     Active Substance: MESALAMINE
     Indication: COLITIS ULCERATIVE
     Route: 065

REACTIONS (14)
  - Porphyria acute [Not Recovered/Not Resolved]
  - Drug ineffective [Not Recovered/Not Resolved]
  - Dizziness [Recovered/Resolved]
  - Laboratory test abnormal [Unknown]
  - Off label use [Unknown]
  - Malaise [Unknown]
  - Nasopharyngitis [Unknown]
  - Frequent bowel movements [Unknown]
  - Pancreatitis [Unknown]
  - Feeling hot [Recovered/Resolved]
  - Drug ineffective [Unknown]
  - White blood cell count increased [Unknown]
  - Drug intolerance [Unknown]
  - Colitis ulcerative [Not Recovered/Not Resolved]

NARRATIVE: CASE EVENT DATE: 20201120
